FAERS Safety Report 21244321 (Version 1)
Quarter: 2022Q3

REPORT INFORMATION
  Report Type: Report from Study
  Country: FR (occurrence: FR)
  Receive Date: 20220823
  Receipt Date: 20220823
  Transmission Date: 20221026
  Serious: Yes (Hospitalization)
  Sender: FDA-Public Use
  Company Number: FR-TAKEDA-2022TUS055885

PATIENT
  Age: 35 Year
  Sex: Female

DRUGS (8)
  1. TEDUGLUTIDE [Suspect]
     Active Substance: TEDUGLUTIDE
     Indication: Short-bowel syndrome
     Dosage: 2.8 MILLIGRAM, QD
     Route: 042
     Dates: start: 20160705, end: 20200429
  2. TEDUGLUTIDE [Suspect]
     Active Substance: TEDUGLUTIDE
     Indication: Short-bowel syndrome
     Dosage: 2.8 MILLIGRAM, QD
     Route: 042
     Dates: start: 20160705, end: 20200429
  3. TEDUGLUTIDE [Suspect]
     Active Substance: TEDUGLUTIDE
     Indication: Short-bowel syndrome
     Dosage: 2.8 MILLIGRAM, QD
     Route: 042
     Dates: start: 20160705, end: 20200429
  4. TEDUGLUTIDE [Suspect]
     Active Substance: TEDUGLUTIDE
     Indication: Short-bowel syndrome
     Dosage: 2.8 MILLIGRAM, QD
     Route: 042
     Dates: start: 20160705, end: 20200429
  5. METRONIDAZOLE [Concomitant]
     Active Substance: METRONIDAZOLE
     Indication: Prophylaxis
     Dosage: 500 MILLIGRAM
     Route: 048
     Dates: start: 202208
  6. METRONIDAZOLE [Concomitant]
     Active Substance: METRONIDAZOLE
     Indication: Enteritis
     Dosage: 500 MILLIGRAM, BID
     Route: 048
     Dates: start: 20220811
  7. GENTAMICIN [Concomitant]
     Active Substance: GENTAMICIN
     Indication: Prophylaxis
     Dosage: 40 MILLIGRAM
     Route: 048
     Dates: start: 202208
  8. GENTAMICIN [Concomitant]
     Active Substance: GENTAMICIN
     Indication: Enteritis
     Dosage: 40 MILLIGRAM, BID
     Route: 048
     Dates: start: 20220811

REACTIONS (1)
  - Enteritis [Not Recovered/Not Resolved]

NARRATIVE: CASE EVENT DATE: 20220715
